FAERS Safety Report 10861595 (Version 1)
Quarter: 2015Q1

REPORT INFORMATION
  Report Type: Spontaneous
  Country: US (occurrence: US)
  Receive Date: 20150224
  Receipt Date: 20150224
  Transmission Date: 20150721
  Serious: No
  Sender: FDA-Public Use
  Company Number: US-ELI_LILLY_AND_COMPANY-US201502007280

PATIENT
  Age: 58 Year
  Sex: Male
  Weight: 95.24 kg

DRUGS (4)
  1. ADCIRCA [Suspect]
     Active Substance: TADALAFIL
     Indication: PRODUCT USED FOR UNKNOWN INDICATION
     Dosage: 2 DF, UNKNOWN
     Route: 065
  2. ADCIRCA [Suspect]
     Active Substance: TADALAFIL
     Dosage: 2 DF, BID
     Route: 065
  3. TYVASO [Suspect]
     Active Substance: TREPROSTINIL
     Dosage: 9 DF, QID
     Route: 055
     Dates: start: 20120301
  4. TYVASO [Suspect]
     Active Substance: TREPROSTINIL
     Indication: COR PULMONALE CHRONIC
     Dosage: 3 DF, QID
     Route: 055
     Dates: start: 20120301

REACTIONS (2)
  - Myalgia [Unknown]
  - Extra dose administered [Unknown]

NARRATIVE: CASE EVENT DATE: 20140419
